FAERS Safety Report 8606354-4 (Version None)
Quarter: 2012Q3

REPORT INFORMATION
  Report Type: 
  Country: None (occurrence: None)
  Receive Date: 20120820
  Receipt Date: 20120808
  Transmission Date: 20120928
  Serious: No
  Sender: FDA-Public Use
  Company Number: US-ASTRAZENECA-2011SE70990

PATIENT
  Age: 56 Year
  Sex: Male

DRUGS (4)
  1. SYMBICORT [Suspect]
     Route: 055
  2. VENTOLIN [Concomitant]
  3. ALBUTEROL [Suspect]
     Route: 065
  4. NETI POT [Concomitant]

REACTIONS (7)
  - MENIERE'S DISEASE [None]
  - MALAISE [None]
  - NAUSEA [None]
  - ABDOMINAL DISTENSION [None]
  - ABDOMINAL PAIN UPPER [None]
  - HEADACHE [None]
  - HEARING IMPAIRED [None]
